FAERS Safety Report 10156645 (Version 1)
Quarter: 2014Q2

REPORT INFORMATION
  Report Type: Spontaneous
  Country: CA (occurrence: CA)
  Receive Date: 20140507
  Receipt Date: 20140507
  Transmission Date: 20141212
  Serious: Yes (Hospitalization, Other)
  Sender: FDA-Public Use
  Company Number: CA-RANBAXY-2014US-81018

PATIENT
  Age: 83 Year
  Sex: Male

DRUGS (3)
  1. PANTOPRAZOLE [Suspect]
     Indication: PRODUCT USED FOR UNKNOWN INDICATION
     Dosage: 40 MG, QD
     Route: 048
  2. CREON [Concomitant]
     Indication: PRODUCT USED FOR UNKNOWN INDICATION
     Dosage: UNK
     Route: 065
  3. VERAPAMIL HCL [Concomitant]
     Indication: PRODUCT USED FOR UNKNOWN INDICATION
     Dosage: UNK
     Route: 065

REACTIONS (7)
  - Chest discomfort [Unknown]
  - Nodal rhythm [Unknown]
  - Renal failure acute [Unknown]
  - Troponin increased [Unknown]
  - Nausea [Unknown]
  - Dizziness [Unknown]
  - Tubulointerstitial nephritis [Unknown]
